FAERS Safety Report 12114106 (Version 2)
Quarter: 2016Q1

REPORT INFORMATION
  Report Type: Spontaneous
  Country: US (occurrence: US)
  Receive Date: 20160225
  Receipt Date: 20160301
  Transmission Date: 20160526
  Serious: Yes (Hospitalization)
  Sender: FDA-Public Use
  Company Number: US-MYLANLABS-2016M1008105

PATIENT

DRUGS (22)
  1. BUDESONIDE W/FORMOTEROL [Concomitant]
     Active Substance: BUDESONIDE\FORMOTEROL
     Dosage: 2 INHALATIONS EVERY 12 HOURS
     Route: 055
  2. PARACETAMOL [Concomitant]
     Active Substance: ACETAMINOPHEN
     Dosage: 650 MG EVERY 4 HOURS AS NEEDED
     Route: 065
  3. LIDOCAINE. [Concomitant]
     Active Substance: LIDOCAINE
     Dosage: EVERY 24 HOURS
     Route: 065
  4. METOPROLOL TARTRATE. [Concomitant]
     Active Substance: METOPROLOL TARTRATE
     Dosage: 50 MG EVERY 12 HOURS
     Route: 065
  5. RIVAROXABAN [Concomitant]
     Active Substance: RIVAROXABAN
     Route: 065
  6. LISINOPRIL. [Concomitant]
     Active Substance: LISINOPRIL
     Dosage: 40 MG EVERY 24 HOURS
     Route: 065
  7. LINEZOLID. [Suspect]
     Active Substance: LINEZOLID
     Indication: ENTEROCOCCAL INFECTION
     Dosage: 600 MG EVERY 12 HOURS
     Route: 065
  8. CEFEPIME [Concomitant]
     Active Substance: CEFEPIME HYDROCHLORIDE
     Dosage: 1 G EVERY 12 HOURS
     Route: 065
  9. PANTOPRAZOLE [Concomitant]
     Active Substance: PANTOPRAZOLE SODIUM
     Dosage: 40 MG EVERY 24 HOURS
     Route: 065
  10. ASPIRIN                            /00002701/ [Concomitant]
     Active Substance: ASPIRIN
     Dosage: 81 MG EVERY 24 HOURS
     Route: 065
  11. ATORVASTATIN [Concomitant]
     Active Substance: ATORVASTATIN
     Dosage: 40 MG EVERY EVENING
     Route: 065
  12. SEVELAMER [Concomitant]
     Active Substance: SEVELAMER
     Dosage: 400 MG THREE TIMES DAILY WITH MEALS
     Route: 065
  13. ALBUGENOL TR                       /01033501/ [Concomitant]
     Dosage: 1 INHALATION EVERY 4 HOURS AS NEEDED
     Route: 055
  14. HEPARIN [Concomitant]
     Active Substance: HEPARIN SODIUM
     Dosage: 5000 UNITS EVERY 8 HOURS
     Route: 058
  15. ONDANSETRON [Concomitant]
     Active Substance: ONDANSETRON
     Dosage: 2 MG EVERY 8 HOURS AS NEEDED
     Route: 065
  16. TRAMADOL. [Concomitant]
     Active Substance: TRAMADOL
     Dosage: 50 MG EVERY 12 HOURS AS NEEDED
     Route: 065
  17. TRAMADOL. [Concomitant]
     Active Substance: TRAMADOL
     Dosage: 50 MG EVERY 4 HOURS AS NEEDED
     Route: 065
  18. METOPROLOL. [Concomitant]
     Active Substance: METOPROLOL
     Route: 065
  19. CARBIDOPA/LEVODOPA [Interacting]
     Active Substance: CARBIDOPA\LEVODOPA
     Indication: PARKINSON^S DISEASE
     Dosage: 25 TO 100 MG EVERY 8 HOURS
     Route: 065
  20. FUROSEMIDE. [Concomitant]
     Active Substance: FUROSEMIDE
     Dosage: 20 MG EVERY 12 HOURS
     Route: 042
  21. FUROSEMIDE. [Concomitant]
     Active Substance: FUROSEMIDE
     Route: 065
  22. TIOTROPIUM BROMIDE [Concomitant]
     Active Substance: TIOTROPIUM BROMIDE
     Dosage: 1 INHALATION EVERY 24 HOURS
     Route: 055

REACTIONS (2)
  - Serotonin syndrome [Recovered/Resolved]
  - Drug interaction [Recovered/Resolved]

NARRATIVE: CASE EVENT DATE: 201509
